FAERS Safety Report 25032978 (Version 1)
Quarter: 2025Q1

REPORT INFORMATION
  Report Type: Spontaneous
  Country: US (occurrence: US)
  Receive Date: 20250303
  Receipt Date: 20250303
  Transmission Date: 20250409
  Serious: No
  Sender: PFIZER
  Company Number: US-PFIZER INC-202500039244

PATIENT
  Age: 59 Year
  Sex: Female

DRUGS (3)
  1. TUKYSA [Suspect]
     Active Substance: TUCATINIB
     Dosage: 300 MG, 2X/DAY
     Route: 048
     Dates: start: 20230206
  2. CAPECITABINE [Concomitant]
     Active Substance: CAPECITABINE
  3. TRASTUZUMAB [Concomitant]
     Active Substance: TRASTUZUMAB

REACTIONS (1)
  - No adverse event [Unknown]
